FAERS Safety Report 7612711 (Version 2)
Quarter: 2013Q4

REPORT INFORMATION
  Report Type: Spontaneous
  Country: FR (occurrence: FR)
  Receive Date: 20100930
  Receipt Date: 20131108
  Transmission Date: 20140711
  Serious: Yes (Hospitalization)
  Sender: FDA-Public Use
  Company Number: FR-SANOFI-AVENTIS-2010SA057748

PATIENT
  Age: 62 Year
  Sex: Male

DRUGS (14)
  1. RIFADINE [Suspect]
     Indication: OSTEITIS
     Route: 042
     Dates: start: 20100827, end: 20100829
  2. LOVENOX [Suspect]
     Indication: THROMBOSIS PROPHYLAXIS
     Route: 058
     Dates: start: 20100829, end: 20100830
  3. VANCOMYCINE [Suspect]
     Indication: OSTEITIS
     Route: 042
     Dates: start: 20100817, end: 20100831
  4. DALACIN [Suspect]
     Indication: OSTEITIS
     Dosage: DOSAGE: 300 MG 8 TIMES DAILY
     Route: 065
     Dates: start: 20100813, end: 20100817
  5. ALLOPURINOL [Concomitant]
     Indication: PRODUCT USED FOR UNKNOWN INDICATION
     Route: 065
  6. AVANDIA [Concomitant]
     Indication: PRODUCT USED FOR UNKNOWN INDICATION
     Route: 065
  7. AMLOR [Concomitant]
     Indication: PRODUCT USED FOR UNKNOWN INDICATION
     Route: 065
  8. CONTRAMAL [Concomitant]
     Indication: PRODUCT USED FOR UNKNOWN INDICATION
     Route: 065
  9. DAFALGAN [Concomitant]
     Indication: PRODUCT USED FOR UNKNOWN INDICATION
     Route: 065
  10. ESIDREX [Concomitant]
     Indication: PRODUCT USED FOR UNKNOWN INDICATION
     Route: 065
  11. ESOMEPRAZOLE [Concomitant]
     Indication: PRODUCT USED FOR UNKNOWN INDICATION
     Route: 065
  12. LYRICA [Concomitant]
     Indication: PRODUCT USED FOR UNKNOWN INDICATION
     Route: 065
  13. TAREG [Concomitant]
     Indication: PRODUCT USED FOR UNKNOWN INDICATION
     Route: 065
  14. OFLOCET [Concomitant]
     Indication: OSTEITIS
     Dates: start: 20100813, end: 20100817

REACTIONS (2)
  - Linear IgA disease [Recovered/Resolved]
  - Thrombocytopenia [Recovered/Resolved]
